FAERS Safety Report 24001237 (Version 1)
Quarter: 2024Q2

REPORT INFORMATION
  Report Type: Spontaneous
  Country: MX (occurrence: MX)
  Receive Date: 20240621
  Receipt Date: 20240621
  Transmission Date: 20240716
  Serious: Yes (Other)
  Sender: FDA-Public Use
  Company Number: MX-PFIZER INC-202400196313

PATIENT
  Age: 3 Day
  Sex: Male

DRUGS (1)
  1. ALPROSTADIL [Suspect]
     Active Substance: ALPROSTADIL
     Indication: Heart disease congenital
     Dosage: 30 MCGKG
     Route: 040

REACTIONS (4)
  - Neonatal hypotension [Recovering/Resolving]
  - Off label use [Unknown]
  - Drug effective for unapproved indication [Unknown]
  - Product use issue [Unknown]
